FAERS Safety Report 11593540 (Version 1)
Quarter: 2015Q4

REPORT INFORMATION
  Report Type: Spontaneous
  Country: None (occurrence: None)
  Receive Date: 20151002
  Receipt Date: 20151002
  Transmission Date: 20160304
  Serious: Yes (Hospitalization)
  Sender: FDA-Public Use
  Company Number: None

PATIENT
  Age: 31 Year
  Sex: Female

DRUGS (1)
  1. ENBREL [Suspect]
     Active Substance: ETANERCEPT
     Indication: PROSTATIC DISORDER
     Route: 058
     Dates: start: 20150917, end: 20150917

REACTIONS (2)
  - Hypersensitivity [None]
  - Dyspnoea [None]

NARRATIVE: CASE EVENT DATE: 20150917
